FAERS Safety Report 4799841-0 (Version None)
Quarter: 2005Q4

REPORT INFORMATION
  Report Type: 
  Country: None (occurrence: None)
  Receive Date: 20051017
  Receipt Date: 20051004
  Transmission Date: 20060501
  Serious: Yes (Hospitalization)
  Sender: FDA-Public Use
  Company Number: 2005AP05272

PATIENT
  Age: 45 Year
  Sex: Female

DRUGS (6)
  1. IRESSA [Suspect]
     Indication: LUNG ADENOCARCINOMA
     Route: 048
     Dates: start: 20050902
  2. MAGNESIUM OXIDE [Concomitant]
     Route: 048
     Dates: start: 20050831
  3. MUCOSTA [Concomitant]
     Route: 048
     Dates: start: 20050831
  4. OXYCONTIN [Concomitant]
     Route: 048
     Dates: start: 20050901
  5. ADALAT [Concomitant]
     Route: 048
     Dates: start: 20050912
  6. GASTER D [Concomitant]
     Route: 048
     Dates: start: 20050922

REACTIONS (10)
  - ALANINE AMINOTRANSFERASE INCREASED [None]
  - ASPARTATE AMINOTRANSFERASE INCREASED [None]
  - BLOOD LACTATE DEHYDROGENASE INCREASED [None]
  - HEADACHE [None]
  - HEPATIC FUNCTION ABNORMAL [None]
  - LYMPHANGIOSIS CARCINOMATOSA [None]
  - PNEUMONITIS [None]
  - PYREXIA [None]
  - RASH [None]
  - SKIN DISORDER [None]
